FAERS Safety Report 7647331-X (Version None)
Quarter: 2011Q3

REPORT INFORMATION
  Report Type: 
  Country: None (occurrence: None)
  Receive Date: 20110801
  Receipt Date: 20110722
  Transmission Date: 20111222
  Serious: Yes (Death)
  Sender: FDA-Public Use
  Company Number: NO-ROCHE-791870

PATIENT
  Sex: Male

DRUGS (6)
  1. XELODA [Suspect]
     Dosage: ONCE DAILY BETWEEN ETOPOSID AND CISPLATIN
     Route: 065
     Dates: start: 20110610, end: 20110707
  2. ETOPOSIDE [Suspect]
     Dosage: SECOND DOSE ON 30 JUN 2011
     Route: 065
     Dates: start: 20110610, end: 20110707
  3. CISPLATIN [Suspect]
     Dosage: DRUG REPORTED AS CISPLATIN HOSPIRA, SECOND DOSE ON 30 JUN 2011
     Route: 065
     Dates: start: 20110610, end: 20110707
  4. ONDANSETRON [Concomitant]
     Dates: start: 20110610, end: 20110611
  5. MEDROL [Concomitant]
     Dates: start: 20110610, end: 20110611
  6. AFIPRAN [Concomitant]

REACTIONS (4)
  - DIARRHOEA [None]
  - PERIPHERAL EMBOLISM [None]
  - RENAL FAILURE ACUTE [None]
  - ELECTROLYTE IMBALANCE [None]
